FAERS Safety Report 17764273 (Version 6)
Quarter: 2020Q3

REPORT INFORMATION
  Report Type: Spontaneous
  Country: US (occurrence: US)
  Receive Date: 20200511
  Receipt Date: 20200706
  Transmission Date: 20201102
  Serious: No
  Sender: FDA-Public Use
  Company Number: US-BIOGEN-2020BI00871682

PATIENT
  Age: 29 Year
  Sex: Female

DRUGS (1)
  1. TYSABRI [Suspect]
     Active Substance: NATALIZUMAB
     Indication: MULTIPLE SCLEROSIS
     Route: 065
     Dates: start: 20161116

REACTIONS (9)
  - Dyslexia [Unknown]
  - Decreased activity [Not Recovered/Not Resolved]
  - Stress [Unknown]
  - Memory impairment [Unknown]
  - Road traffic accident [Unknown]
  - Aphasia [Unknown]
  - Malaise [Unknown]
  - Irritability [Unknown]
  - Dysarthria [Recovered/Resolved]

NARRATIVE: CASE EVENT DATE: 202005
